FAERS Safety Report 16319775 (Version 1)
Quarter: 2019Q2

REPORT INFORMATION
  Report Type: Spontaneous
  Country: US (occurrence: US)
  Receive Date: 20190516
  Receipt Date: 20190516
  Transmission Date: 20190711
  Serious: No
  Sender: FDA-Public Use
  Company Number: US-ACLARIS THERAPEUTICS-2019US003774

PATIENT
  Age: 65 Year
  Sex: Female

DRUGS (1)
  1. RHOFADE [Suspect]
     Active Substance: OXYMETAZOLINE HYDROCHLORIDE
     Indication: ROSACEA
     Dosage: 1 DF, DAILY
     Route: 061
     Dates: start: 20190328

REACTIONS (2)
  - Acne [Not Recovered/Not Resolved]
  - Application site erythema [Not Recovered/Not Resolved]
